FAERS Safety Report 9476411 (Version 2)
Quarter: 2013Q3

REPORT INFORMATION
  Report Type: Spontaneous
  Country: DE (occurrence: DE)
  Receive Date: 20130826
  Receipt Date: 20130826
  Transmission Date: 20140515
  Serious: Yes (Hospitalization)
  Sender: FDA-Public Use
  Company Number: DE-AMGEN-DEUSP2013021863

PATIENT
  Age: 63 Year
  Sex: Female

DRUGS (6)
  1. ENBREL [Suspect]
     Indication: PSORIATIC ARTHROPATHY
     Dosage: 50 MG, WEEKLY
     Route: 065
     Dates: start: 20120201
  2. METFORMIN AL [Concomitant]
     Indication: DIABETES MELLITUS
     Dosage: UNK
  3. L-THYROXIN [Concomitant]
     Dosage: UNK
  4. LYRICA [Concomitant]
     Dosage: UNK
  5. IBUPROFEN [Concomitant]
     Dosage: UNK UNK, AS NECESSARY
  6. ESOMEPRAZOLE [Concomitant]
     Dosage: UNK

REACTIONS (1)
  - Synovial cyst [Recovered/Resolved]
